FAERS Safety Report 4726086-2 (Version None)
Quarter: 2005Q3

REPORT INFORMATION
  Report Type: 
  Country: None (occurrence: None)
  Receive Date: 20050725
  Receipt Date: 20050712
  Transmission Date: 20060218
  Serious: Yes (Other)
  Sender: FDA-Public Use
  Company Number: HQWYE205314JUL05

PATIENT
  Age: 57 Year
  Sex: Female

DRUGS (2)
  1. ADVIL [Suspect]
     Indication: PAIN
     Dosage: 3 LIQUI-GELS, FOLLOWED BY 1 MORE, ORAL
     Route: 048
     Dates: start: 20040901, end: 20040901
  2. PREMPRO [Concomitant]

REACTIONS (5)
  - ANAPHYLACTIC REACTION [None]
  - HYPOAESTHESIA ORAL [None]
  - PHARYNGEAL OEDEMA [None]
  - PHARYNX DISCOMFORT [None]
  - SWELLING FACE [None]
